FAERS Safety Report 23995965 (Version 2)
Quarter: 2024Q4

REPORT INFORMATION
  Report Type: Spontaneous
  Country: US (occurrence: US)
  Receive Date: 20240620
  Receipt Date: 20241217
  Transmission Date: 20250114
  Serious: No
  Sender: PFIZER
  Company Number: US-PFIZER INC-202400192413

PATIENT
  Age: 53 Year
  Sex: Female

DRUGS (2)
  1. VELSIPITY [Suspect]
     Active Substance: ETRASIMOD ARGININE
     Indication: Colitis microscopic
     Dosage: 2 MG
     Route: 048
  2. BEE POLLEN [Concomitant]
     Active Substance: BEE POLLEN
     Dosage: UNK

REACTIONS (2)
  - Off label use [Unknown]
  - Hypersensitivity [Unknown]
